FAERS Safety Report 5170772-X (Version None)
Quarter: 2006Q4

REPORT INFORMATION
  Report Type: 
  Country: None (occurrence: None)
  Receive Date: 20060919
  Receipt Date: 20060614
  Transmission Date: 20070319
  Serious: No
  Sender: FDA-Public Use
  Company Number: BDI-008330

PATIENT
  Age: 10 Year
  Sex: Male
  Weight: 72.73 kg

DRUGS (2)
  1. MULTIHANCE [Suspect]
     Indication: CONSTIPATION
     Dosage: 16 ML ONCE IV
     Route: 042
     Dates: start: 20060613, end: 20060613
  2. MULTIHANCE [Suspect]
     Indication: NUCLEAR MAGNETIC RESONANCE IMAGING
     Dosage: 16 ML ONCE IV
     Route: 042
     Dates: start: 20060613, end: 20060613

REACTIONS (1)
  - VOMITING [None]
